FAERS Safety Report 9342880 (Version 1)
Quarter: 2013Q2

REPORT INFORMATION
  Report Type: Spontaneous
  Country: CA (occurrence: None)
  Receive Date: 20130607
  Receipt Date: 20130607
  Transmission Date: 20140414
  Serious: Yes (Disabling)
  Sender: FDA-Public Use
  Company Number: TPA2013A04627

PATIENT
  Age: 50 Year
  Sex: Female

DRUGS (4)
  1. DEXILANT (DEXLANSOPRAZOLE) [Suspect]
     Indication: GASTROOESOPHAGEAL REFLUX DISEASE
     Dosage: 60 MG (60  MG, 1 IN 1 D0
     Route: 048
     Dates: start: 20120802, end: 20120906
  2. DEXILANT (DEXLANSOPRAZOLE) [Suspect]
     Indication: DYSPEPSIA
     Dosage: 60 MG (60  MG, 1 IN 1 D0
     Route: 048
     Dates: start: 20120802, end: 20120906
  3. BIAXIN XL [Suspect]
  4. FLOVENT HFA [Suspect]

REACTIONS (7)
  - Gait disturbance [None]
  - Oedema peripheral [None]
  - Paraesthesia [None]
  - Hypoaesthesia [None]
  - Pruritus [None]
  - Abdominal distension [None]
  - Abdominal pain [None]
